FAERS Safety Report 4426101-X (Version None)
Quarter: 2004Q3

REPORT INFORMATION
  Report Type: 
  Country: None (occurrence: None)
  Receive Date: 20040811
  Receipt Date: 20040728
  Transmission Date: 20050211
  Serious: Yes (Hospitalization)
  Sender: FDA-Public Use
  Company Number: JP_040402899

PATIENT
  Age: 55 Year
  Sex: Male
  Weight: 56 kg

DRUGS (2)
  1. GEMZAR [Suspect]
     Indication: PANCREATIC CARCINOMA
     Dosage: 1600 MG OTHER
     Route: 042
     Dates: start: 20031006, end: 20040308
  2. UFT [Concomitant]

REACTIONS (3)
  - DISEASE RECURRENCE [None]
  - IMPLANT OBSTRUCTION [None]
  - JAUNDICE CHOLESTATIC [None]
